FAERS Safety Report 18122999 (Version 1)
Quarter: 2020Q3

REPORT INFORMATION
  Report Type: Spontaneous
  Country: US (occurrence: US)
  Receive Date: 20200806
  Receipt Date: 20200806
  Transmission Date: 20201103
  Serious: No
  Sender: FDA-Public Use
  Company Number: None

PATIENT
  Age: 82 Year
  Sex: Female
  Weight: 56.7 kg

DRUGS (1)
  1. PROLIA [Suspect]
     Active Substance: DENOSUMAB
     Indication: BONE LOSS
     Dosage: ?          QUANTITY:60 MG MILLIGRAM(S);?
     Route: 042
     Dates: start: 20190511

REACTIONS (19)
  - Abdominal pain upper [None]
  - Pain [None]
  - Joint swelling [None]
  - Groin pain [None]
  - Chest pain [None]
  - Loss of personal independence in daily activities [None]
  - Tooth loss [None]
  - Drug level [None]
  - Dyspepsia [None]
  - Bone pain [None]
  - Myalgia [None]
  - Urinary incontinence [None]
  - Mental disorder [None]
  - Arthralgia [None]
  - Gait inability [None]
  - Endodontic procedure [None]
  - Influenza like illness [None]
  - Joint noise [None]
  - Tooth fracture [None]

NARRATIVE: CASE EVENT DATE: 20191105
